FAERS Safety Report 7749695-5 (Version None)
Quarter: 2011Q3

REPORT INFORMATION
  Report Type: 
  Country: None (occurrence: None)
  Receive Date: 20110914
  Receipt Date: 20110908
  Transmission Date: 20111222
  Serious: Yes (Life-Threatening, Hospitalization, Disabling, Other)
  Sender: FDA-Public Use
  Company Number: US-ROCHE-785846

PATIENT
  Age: 43 Year
  Sex: Male

DRUGS (6)
  1. BLINDED GS 9256 [Suspect]
     Indication: HEPATITIS C
     Dosage: DOSE BLINDED
     Route: 048
     Dates: start: 20110404, end: 20110602
  2. RIBAVIRIN [Suspect]
     Indication: HEPATITIS C
     Route: 048
     Dates: start: 20110404, end: 20110608
  3. PEGINTERFERON ALFA-2A [Suspect]
     Indication: HEPATITIS C
     Dosage: DAILY DOSE: 25.7143 MCG
     Route: 058
     Dates: start: 20110404, end: 20110608
  4. BLINDED GS-9190 [Suspect]
     Indication: HEPATITIS C
     Dosage: DOSE BLINDED
     Route: 048
     Dates: start: 20110404, end: 20110608
  5. TYLENOL-500 [Concomitant]
  6. TYLENOL-500 [Concomitant]
     Dates: start: 20110404

REACTIONS (7)
  - RENAL FAILURE ACUTE [None]
  - STAPHYLOCOCCAL BACTERAEMIA [None]
  - URINARY TRACT INFECTION [None]
  - ANAEMIA [None]
  - CELLULITIS [None]
  - ARTHRITIS BACTERIAL [None]
  - JAUNDICE [None]
